FAERS Safety Report 25196480 (Version 1)
Quarter: 2025Q2

REPORT INFORMATION
  Report Type: Spontaneous
  Country: IT (occurrence: IT)
  Receive Date: 20250415
  Receipt Date: 20250415
  Transmission Date: 20250717
  Serious: Yes (Hospitalization, Other)
  Sender: UNICHEM
  Company Number: IT-UNICHEM LABORATORIES LIMITED-UNI-2025-IT-001830

PATIENT

DRUGS (3)
  1. LAMOTRIGINE [Suspect]
     Active Substance: LAMOTRIGINE
     Indication: Psychotic disorder
     Route: 065
  2. DIVALPROEX SODIUM [Suspect]
     Active Substance: DIVALPROEX SODIUM
     Indication: Schizophrenia
     Route: 065
  3. ARIPIPRAZOLE [Concomitant]
     Active Substance: ARIPIPRAZOLE
     Indication: Schizophrenia
     Route: 065

REACTIONS (2)
  - Hepatitis cholestatic [Unknown]
  - Psychotic disorder [Not Recovered/Not Resolved]
